FAERS Safety Report 9272180 (Version 1)
Quarter: 2013Q2

REPORT INFORMATION
  Report Type: Spontaneous
  Country: US (occurrence: US)
  Receive Date: 20130506
  Receipt Date: 20130506
  Transmission Date: 20140414
  Serious: Yes (Other)
  Sender: FDA-Public Use
  Company Number: CHPA2013US007444

PATIENT
  Age: 76 Year
  Sex: Male

DRUGS (3)
  1. GAS-X EXTSTR CHEWABLE TABS CHERRY CREME [Suspect]
     Indication: FLATULENCE
     Dosage: 1 MG, QID
     Route: 048
  2. SENNAPLUS [Concomitant]
     Indication: LAXATIVE SUPPORTIVE CARE
  3. WARFARIN [Concomitant]
     Indication: ANTICOAGULANT THERAPY

REACTIONS (6)
  - Plasma cell myeloma [Not Recovered/Not Resolved]
  - Pain [Unknown]
  - Weight fluctuation [Unknown]
  - Constipation [Not Recovered/Not Resolved]
  - Weight decreased [Not Recovered/Not Resolved]
  - Off label use [Unknown]
